FAERS Safety Report 24913984 (Version 1)
Quarter: 2025Q1

REPORT INFORMATION
  Report Type: Report from Study
  Country: US (occurrence: US)
  Receive Date: 20250202
  Receipt Date: 20250202
  Transmission Date: 20250408
  Serious: Yes (Other)
  Sender: NOVARTIS
  Company Number: US-002147023-NVSC2025US016489

PATIENT
  Sex: Female

DRUGS (1)
  1. COSENTYX [Suspect]
     Active Substance: SECUKINUMAB
     Indication: Product used for unknown indication
     Dosage: 300 MG, QMO
     Route: 058

REACTIONS (3)
  - Bipolar disorder [Unknown]
  - Dyslexia [Unknown]
  - Psoriasis [Recovering/Resolving]
